FAERS Safety Report 19998773 (Version 2)
Quarter: 2021Q4

REPORT INFORMATION
  Report Type: Spontaneous
  Country: US (occurrence: US)
  Receive Date: 20211027
  Receipt Date: 20211026
  Transmission Date: 20220303
  Serious: No
  Sender: FDA-Public Use
  Company Number: US-ROCHE-2857560

PATIENT
  Sex: Male

DRUGS (4)
  1. COTELLIC [Suspect]
     Active Substance: COBIMETINIB
     Indication: Neoplasm malignant
     Route: 048
     Dates: start: 20210316
  2. COTELLIC [Suspect]
     Active Substance: COBIMETINIB
     Indication: Skin cancer
  3. ZELBORAF [Suspect]
     Active Substance: VEMURAFENIB
     Indication: Neoplasm malignant
     Route: 048
     Dates: start: 202103
  4. ZELBORAF [Suspect]
     Active Substance: VEMURAFENIB
     Indication: Skin cancer

REACTIONS (1)
  - Eye inflammation [Unknown]
